FAERS Safety Report 7264078-2 (Version None)
Quarter: 2011Q1

REPORT INFORMATION
  Report Type: 
  Country: None (occurrence: None)
  Receive Date: 20110130
  Receipt Date: 20101230
  Transmission Date: 20110831
  Serious: No
  Sender: FDA-Public Use
  Company Number: US-ABBOTT-11P-163-0694663-00

PATIENT
  Age: 74 Year
  Sex: Female

DRUGS (4)
  1. HUMIRA [Suspect]
     Indication: PSORIASIS
  2. SUGAR PILL [Concomitant]
     Indication: DIABETES MELLITUS
  3. ASPIRIN [Concomitant]
     Indication: PRODUCT USED FOR UNKNOWN INDICATION
     Dosage: DAILY
  4. UNKNOWN MEDICATION [Concomitant]
     Indication: HYPERTENSION

REACTIONS (1)
  - INJECTION SITE HAEMORRHAGE [None]
